FAERS Safety Report 4775345-6 (Version None)
Quarter: 2005Q3

REPORT INFORMATION
  Report Type: 
  Country: None (occurrence: None)
  Receive Date: 20050922
  Receipt Date: 20050816
  Transmission Date: 20060218
  Serious: Yes (Death)
  Sender: FDA-Public Use
  Company Number: DE-BOEHRINGER INGELHEIM PHARMACEUTICALS, INC.-2005-DE-03197DE

PATIENT
  Sex: Male
  Weight: 104 kg

DRUGS (5)
  1. MICARDIS [Suspect]
     Indication: HYPERTENSION
     Route: 048
     Dates: start: 20050321
  2. BELOC [Concomitant]
     Indication: HYPERTENSION
     Route: 048
  3. CEDUR RETARD [Concomitant]
     Indication: HYPERLIPIDAEMIA
     Route: 048
  4. ALLOPURINOL [Concomitant]
     Indication: BLOOD URIC ACID INCREASED
     Route: 048
  5. FUMADERM [Concomitant]
     Route: 048

REACTIONS (1)
  - DEATH [None]
